FAERS Safety Report 17723564 (Version 1)
Quarter: 2020Q2

REPORT INFORMATION
  Report Type: Spontaneous
  Country: CA (occurrence: CA)
  Receive Date: 20200429
  Receipt Date: 20200429
  Transmission Date: 20200714
  Serious: No
  Sender: FDA-Public Use
  Company Number: None

PATIENT
  Age: 37 Year
  Sex: Female
  Weight: 84.15 kg

DRUGS (3)
  1. METHYLPHENIDATE. [Concomitant]
     Active Substance: METHYLPHENIDATE
  2. ACT-METHYLPHENIDATE HCL ER 36MG TEV 02441950 [Suspect]
     Active Substance: METHYLPHENIDATE HYDROCHLORIDE
  3. CIPRALEX [Concomitant]
     Active Substance: ESCITALOPRAM OXALATE

REACTIONS (12)
  - Product substitution issue [None]
  - Headache [None]
  - Sensory disturbance [None]
  - Muscle twitching [None]
  - Restlessness [None]
  - Physical disability [None]
  - Irritability [None]
  - Hypoaesthesia [None]
  - Hypertension [None]
  - Mental impairment [None]
  - Dizziness [None]
  - Anxiety [None]

NARRATIVE: CASE EVENT DATE: 20200414
